FAERS Safety Report 7860440-5 (Version None)
Quarter: 2011Q4

REPORT INFORMATION
  Report Type: 
  Country: None (occurrence: None)
  Receive Date: 20111027
  Receipt Date: 20111020
  Transmission Date: 20120403
  Serious: Yes (Hospitalization)
  Sender: FDA-Public Use
  Company Number: PHEH2011US07434

PATIENT
  Age: 66 Year
  Sex: Female
  Weight: 54.422 kg

DRUGS (1)
  1. TOBI [Suspect]
     Dosage: 300 MG, BID,IN A CYCLE OF 28 DAYS ON AND 28 DAYS OFF
     Dates: start: 20110630

REACTIONS (2)
  - PSEUDOMONAS INFECTION [None]
  - UPPER RESPIRATORY TRACT INFECTION [None]
